FAERS Safety Report 19573874 (Version 2)
Quarter: 2021Q3

REPORT INFORMATION
  Report Type: Spontaneous
  Country: CA (occurrence: CA)
  Receive Date: 20210718
  Receipt Date: 20210823
  Transmission Date: 20211014
  Serious: Yes (Other)
  Sender: FDA-Public Use
  Company Number: CA-JNJFOC-20210734994

PATIENT
  Sex: Female

DRUGS (1)
  1. XARELTO [Suspect]
     Active Substance: RIVAROXABAN
     Indication: PULMONARY EMBOLISM
     Dosage: 20 MG, QD
     Route: 048
     Dates: start: 201803

REACTIONS (9)
  - Malaise [Unknown]
  - Diabetes mellitus [Unknown]
  - Contusion [Unknown]
  - Rash macular [Unknown]
  - Urinary incontinence [Unknown]
  - Puncture site haemorrhage [Unknown]
  - Increased tendency to bruise [Unknown]
  - Product dose omission issue [Unknown]
  - Hepatic cirrhosis [Unknown]

NARRATIVE: CASE EVENT DATE: 2021
